FAERS Safety Report 11600699 (Version 1)
Quarter: 2015Q3

REPORT INFORMATION
  Report Type: Spontaneous
  Country: US (occurrence: US)
  Receive Date: 20150916
  Receipt Date: 20150916
  Transmission Date: 20151125
  Serious: Yes (Hospitalization, Other)
  Sender: FDA-Public Use
  Company Number: US-ELI_LILLY_AND_COMPANY-US201406004806

PATIENT
  Age: 60 Year
  Sex: Female
  Weight: 87.98 kg

DRUGS (1)
  1. HUMALOG [Suspect]
     Active Substance: INSULIN LISPRO
     Indication: PRODUCT USED FOR UNKNOWN INDICATION
     Route: 058

REACTIONS (11)
  - Nausea [Unknown]
  - Hypoglycaemic seizure [Unknown]
  - Neuropathy peripheral [Unknown]
  - Malaise [Unknown]
  - Fatigue [Not Recovered/Not Resolved]
  - Dermatitis contact [Unknown]
  - Blood glucose increased [Unknown]
  - Fibrosis [Unknown]
  - Hypertension [Unknown]
  - Headache [Unknown]
  - Blood glucose fluctuation [Unknown]

NARRATIVE: CASE EVENT DATE: 20140610
